FAERS Safety Report 8056829-4 (Version None)
Quarter: 2012Q1

REPORT INFORMATION
  Report Type: 
  Country: None (occurrence: None)
  Receive Date: 20120119
  Receipt Date: 20110523
  Transmission Date: 20120608
  Serious: No
  Sender: FDA-Public Use
  Company Number: US-SANOFI-AVENTIS-2011SA033977

PATIENT
  Sex: Male

DRUGS (1)
  1. LASIX [Suspect]
     Route: 065

REACTIONS (3)
  - ALBUMIN URINE PRESENT [None]
  - OEDEMA [None]
  - PROTEINURIA [None]
